FAERS Safety Report 14994781 (Version 8)
Quarter: 2021Q3

REPORT INFORMATION
  Report Type: Spontaneous
  Country: US (occurrence: US)
  Receive Date: 20180611
  Receipt Date: 20210930
  Transmission Date: 20211014
  Serious: Yes (Life-Threatening, Hospitalization)
  Sender: FDA-Public Use
  Company Number: US-PFIZER INC-2018230995

PATIENT
  Age: 70 Year
  Sex: Female
  Weight: 109 kg

DRUGS (7)
  1. TOLTERODINE [Concomitant]
     Active Substance: TOLTERODINE
     Dosage: 2 MG
  2. IBRANCE [Suspect]
     Active Substance: PALBOCICLIB
     Indication: BREAST CANCER FEMALE
     Dosage: 125 MG
     Dates: start: 201708
  3. AMLODIPINE [Concomitant]
     Active Substance: AMLODIPINE BESYLATE
     Dosage: 5 MG
  4. IBRANCE [Suspect]
     Active Substance: PALBOCICLIB
     Dosage: 125 MG, CYCLIC (125MG ONCE A DAY BY MOUTH FOR 21 DAYS THEN 7 DAYS OFF)
     Route: 048
     Dates: start: 2018
  5. ATENOLOL. [Concomitant]
     Active Substance: ATENOLOL
     Dosage: 50 MG
  6. OXYCODONE AND ACETAMINOPHEN [Concomitant]
     Active Substance: ACETAMINOPHEN\OXYCODONE HYDROCHLORIDE
     Dosage: UNK (5/325)
  7. LETROZOLE. [Concomitant]
     Active Substance: LETROZOLE
     Dosage: 2.5 MG

REACTIONS (8)
  - Abdominal abscess [Unknown]
  - Oedema peripheral [Unknown]
  - Stomatitis [Not Recovered/Not Resolved]
  - Gastrointestinal disorder [Unknown]
  - Infection [Unknown]
  - Constipation [Unknown]
  - Renal disorder [Unknown]
  - Blood count abnormal [Unknown]

NARRATIVE: CASE EVENT DATE: 2018
